FAERS Safety Report 4379341-2 (Version None)
Quarter: 2004Q2

REPORT INFORMATION
  Report Type: 
  Country: None (occurrence: None)
  Receive Date: 20040610
  Receipt Date: 20040529
  Transmission Date: 20050107
  Serious: Yes (Other)
  Sender: FDA-Public Use
  Company Number: 2004027642

PATIENT
  Age: 39 Year
  Sex: Male

DRUGS (4)
  1. NEURONTIN [Suspect]
     Indication: CONVULSION
     Dosage: 3200 MG (TID), ORAL
     Route: 048
  2. PAXIL [Concomitant]
  3. DEPAKOTE [Concomitant]
  4. TYLENOL W/ CODEINE [Concomitant]

REACTIONS (3)
  - GRAND MAL CONVULSION [None]
  - LABORATORY TEST ABNORMAL [None]
  - SEDATION [None]
